FAERS Safety Report 7722457-0 (Version None)
Quarter: 2011Q3

REPORT INFORMATION
  Report Type: 
  Country: None (occurrence: None)
  Receive Date: 20110831
  Receipt Date: 20110819
  Transmission Date: 20111222
  Serious: Yes (Hospitalization, Other)
  Sender: FDA-Public Use
  Company Number: CA-GENENTECH-300254

PATIENT
  Sex: Male
  Weight: 113.4 kg

DRUGS (6)
  1. XOLAIR [Suspect]
     Indication: ASTHMA
     Dosage: 300 MG, 1/MONTH
     Route: 058
     Dates: start: 20070216
  2. XOLAIR [Suspect]
     Dosage: 300 MG, 1/MONTH
     Route: 058
     Dates: start: 20090619
  3. XOLAIR [Suspect]
     Dosage: 300 MG, 1/MONTH
     Route: 058
     Dates: start: 20100326
  4. XOLAIR [Suspect]
     Dosage: 300 MG, Q2W
     Route: 058
     Dates: start: 20091106
  5. ACETAMINOPHEN [Concomitant]
     Indication: PRODUCT USED FOR UNKNOWN INDICATION
  6. XOLAIR [Suspect]
     Dosage: UNK
     Route: 065

REACTIONS (9)
  - HYPERSENSITIVITY [None]
  - PAIN IN EXTREMITY [None]
  - FATIGUE [None]
  - SINUSITIS [None]
  - TOXICITY TO VARIOUS AGENTS [None]
  - PYREXIA [None]
  - RHINITIS ALLERGIC [None]
  - OROPHARYNGEAL PAIN [None]
  - COUGH [None]
